FAERS Safety Report 23681279 (Version 1)
Quarter: 2024Q1

REPORT INFORMATION
  Report Type: Spontaneous
  Country: US (occurrence: US)
  Receive Date: 20240328
  Receipt Date: 20240328
  Transmission Date: 20240410
  Serious: Yes (Other)
  Sender: FDA-Public Use
  Company Number: US-CIPLA LTD.-2024US02976

PATIENT

DRUGS (2)
  1. ALBUTEROL [Suspect]
     Active Substance: ALBUTEROL
     Indication: Product used for unknown indication
     Dosage: 180 MCG (2 PUFFS), PRN (EVERY 4 TO 6 HOURS AS NEEDED)
     Route: 048
  2. ALBUTEROL [Suspect]
     Active Substance: ALBUTEROL
     Dosage: 180 MCG (2 PUFFS), PRN (EVERY 4 TO 6 HOURS AS NEEDED)
     Route: 048
     Dates: start: 20240314

REACTIONS (3)
  - Eye disorder [Unknown]
  - Product packaging quantity issue [Unknown]
  - Device delivery system issue [Unknown]

NARRATIVE: CASE EVENT DATE: 20240311
